FAERS Safety Report 23772564 (Version 2)
Quarter: 2024Q2

REPORT INFORMATION
  Report Type: Spontaneous
  Country: US (occurrence: US)
  Receive Date: 20240423
  Receipt Date: 20240506
  Transmission Date: 20240716
  Serious: No
  Sender: FDA-Public Use
  Company Number: US-ELI_LILLY_AND_COMPANY-US202404012510

PATIENT
  Age: 42 Year
  Sex: Female

DRUGS (2)
  1. VERZENIO [Suspect]
     Active Substance: ABEMACICLIB
     Indication: Breast cancer female
     Dosage: 150 MG, BID
     Route: 048
     Dates: start: 20230623
  2. VERZENIO [Suspect]
     Active Substance: ABEMACICLIB
     Dosage: 150 MG, BID
     Route: 048

REACTIONS (7)
  - Breast discomfort [Unknown]
  - Photophobia [Unknown]
  - Headache [Unknown]
  - Dehydration [Unknown]
  - Diarrhoea [Unknown]
  - Alopecia [Unknown]
  - Blood creatinine increased [Unknown]
